FAERS Safety Report 17250338 (Version 2)
Quarter: 2020Q2

REPORT INFORMATION
  Report Type: Report from Study
  Country: US (occurrence: US)
  Receive Date: 20200109
  Receipt Date: 20200417
  Transmission Date: 20200713
  Serious: Yes (Hospitalization)
  Sender: FDA-Public Use
  Company Number: US-ROCHE-2513946

PATIENT
  Sex: Female

DRUGS (1)
  1. XELODA [Suspect]
     Active Substance: CAPECITABINE
     Indication: BREAST CANCER FEMALE
     Dosage: TAKE 3 TABLET(S) BY MOUTH TWICE A DAY ON DAYS 1-14
     Route: 048

REACTIONS (2)
  - Peripheral swelling [Unknown]
  - White blood cell count decreased [Unknown]
